FAERS Safety Report 10345031 (Version 19)
Quarter: 2016Q1

REPORT INFORMATION
  Report Type: Report from Study
  Country: CA (occurrence: CA)
  Receive Date: 20140728
  Receipt Date: 20160218
  Transmission Date: 20160525
  Serious: Yes (Death, Life-Threatening, Hospitalization)
  Sender: FDA-Public Use
  Company Number: CA-ROCHE-1427553

PATIENT
  Age: 67 Year
  Sex: Female
  Weight: 71.1 kg

DRUGS (39)
  1. MAXERAN [Concomitant]
     Active Substance: METOCLOPRAMIDE HYDROCHLORIDE
     Route: 065
     Dates: start: 20140506
  2. TYLENOL [Concomitant]
     Active Substance: ACETAMINOPHEN
     Indication: INFECTION
     Route: 048
     Dates: start: 20140627
  3. TYLENOL [Concomitant]
     Active Substance: ACETAMINOPHEN
     Route: 048
     Dates: start: 20140713, end: 20140724
  4. TYLENOL [Concomitant]
     Active Substance: ACETAMINOPHEN
     Route: 048
     Dates: start: 20140710, end: 20140712
  5. POTASSIUM CHLORIDE. [Concomitant]
     Active Substance: POTASSIUM CHLORIDE
     Route: 065
     Dates: start: 20140724, end: 20140724
  6. TAZOCIN [Concomitant]
     Active Substance: PIPERACILLIN SODIUM\TAZOBACTAM SODIUM
     Indication: CHRONIC LYMPHOCYTIC LEUKAEMIA
     Route: 042
     Dates: start: 20140627, end: 20140627
  7. MAXERAN [Concomitant]
     Active Substance: METOCLOPRAMIDE HYDROCHLORIDE
     Route: 048
     Dates: start: 20140707, end: 20140712
  8. COLACE [Concomitant]
     Active Substance: DOCUSATE SODIUM
     Route: 065
     Dates: start: 20140216
  9. TUCKS PADS [Concomitant]
     Route: 061
     Dates: start: 20140618
  10. POTASSIUM CHLORIDE. [Concomitant]
     Active Substance: POTASSIUM CHLORIDE
     Route: 042
     Dates: start: 20140715, end: 20140716
  11. HYDROMORPHONE [Concomitant]
     Active Substance: HYDROMORPHONE
     Route: 048
     Dates: start: 20140606
  12. RANITIDINE [Concomitant]
     Active Substance: RANITIDINE\RANITIDINE HYDROCHLORIDE
     Indication: PROPHYLAXIS
     Route: 048
     Dates: start: 20140627
  13. PREDNISONE. [Concomitant]
     Active Substance: PREDNISONE
     Route: 048
     Dates: start: 20140711, end: 20140712
  14. NYSTATIN. [Concomitant]
     Active Substance: NYSTATIN
     Route: 048
     Dates: start: 20140713, end: 20140724
  15. LACTULOSE. [Concomitant]
     Active Substance: LACTULOSE
     Route: 065
     Dates: start: 20140714, end: 20140724
  16. LABETALOL [Concomitant]
     Active Substance: LABETALOL\LABETALOL HYDROCHLORIDE
     Route: 065
     Dates: start: 20140717, end: 20140720
  17. MAGNESIUM SULPHATE [Concomitant]
     Active Substance: MAGNESIUM SULFATE
     Route: 042
     Dates: start: 20140707, end: 20140707
  18. MAXERAN [Concomitant]
     Active Substance: METOCLOPRAMIDE HYDROCHLORIDE
     Route: 048
     Dates: start: 20140715, end: 20140724
  19. PREDNISONE. [Concomitant]
     Active Substance: PREDNISONE
     Route: 065
     Dates: start: 20140721, end: 20140723
  20. ANUSOL HC (HYDROCORTISONE ACETATE) [Concomitant]
     Route: 054
     Dates: start: 20140628
  21. NORMAL SALINE [Concomitant]
     Active Substance: SODIUM CHLORIDE
     Dosage: SINGLE DOSE
     Route: 040
     Dates: start: 20140709, end: 20140709
  22. NARCAN [Concomitant]
     Active Substance: NALOXONE HYDROCHLORIDE
     Dosage: SINGLE DOSE
     Route: 042
     Dates: start: 20140714, end: 20140714
  23. CHLORAMBUCIL [Suspect]
     Active Substance: CHLORAMBUCIL
     Indication: CHRONIC LYMPHOCYTIC LEUKAEMIA
     Dosage: ONCE DAILY ON DAY 1 AND 15?DATE OF FIRST AND LAST DOSE PRIOR TO SAE: 04/JUL/2014
     Route: 048
     Dates: end: 20140724
  24. POTASSIUM CHLORIDE. [Concomitant]
     Active Substance: POTASSIUM CHLORIDE
     Route: 042
     Dates: start: 20140715, end: 20140715
  25. OBINUTUZUMAB [Suspect]
     Active Substance: OBINUTUZUMAB
     Indication: CHRONIC LYMPHOCYTIC LEUKAEMIA
     Dosage: STARTED ON 04/JUL/2014 (100 MG) AND DATE OF LAST DOSE PRIOR TO SAE: 05/JUL/2014 (900 MG).
     Route: 041
     Dates: end: 20150724
  26. OBINUTUZUMAB [Suspect]
     Active Substance: OBINUTUZUMAB
     Route: 041
     Dates: end: 20140705
  27. OBINUTUZUMAB [Suspect]
     Active Substance: OBINUTUZUMAB
     Dosage: DATE OF LAST DOSE PRIOR TO SAE: 05/JUL/2014
     Route: 041
     Dates: end: 20140724
  28. DEMEROL [Concomitant]
     Active Substance: MEPERIDINE HYDROCHLORIDE
     Dosage: SINGLE DOSE
     Route: 042
     Dates: start: 20140704, end: 20140704
  29. HYZAAR [Concomitant]
     Active Substance: HYDROCHLOROTHIAZIDE\LOSARTAN POTASSIUM
     Route: 065
     Dates: start: 2006
  30. PREDNISONE. [Concomitant]
     Active Substance: PREDNISONE
     Route: 048
     Dates: start: 20140627, end: 20140701
  31. ALLOPURINOL. [Concomitant]
     Active Substance: ALLOPURINOL
     Indication: PROPHYLAXIS
     Route: 048
     Dates: start: 20140628, end: 20140713
  32. LOSARTAN. [Concomitant]
     Active Substance: LOSARTAN
     Route: 065
     Dates: start: 20140717, end: 20140724
  33. VERSED [Concomitant]
     Active Substance: MIDAZOLAM HYDROCHLORIDE
     Route: 065
     Dates: start: 20140724, end: 20140724
  34. VITAMIN K [Concomitant]
     Active Substance: PHYTONADIONE
     Dosage: SINGLE DOSE
     Route: 048
     Dates: start: 20140723, end: 20140723
  35. MAXERAN [Concomitant]
     Active Substance: METOCLOPRAMIDE HYDROCHLORIDE
     Route: 065
     Dates: start: 20140606
  36. MAXERAN [Concomitant]
     Active Substance: METOCLOPRAMIDE HYDROCHLORIDE
     Route: 048
     Dates: start: 20140713, end: 20140713
  37. PROCTOSEDYL OINTMENT (CANADA) [Concomitant]
     Route: 061
     Dates: start: 20140616
  38. FLUCONAZOLE. [Concomitant]
     Active Substance: FLUCONAZOLE
     Route: 048
     Dates: start: 20140719, end: 20140724
  39. AMOXICILLIN/CLAVULANIC ACID [Concomitant]
     Active Substance: AMOXICILLIN\CLAVULANIC ACID
     Indication: PROPHYLAXIS
     Route: 048
     Dates: start: 20140628, end: 20140702

REACTIONS (2)
  - Acute respiratory distress syndrome [Fatal]
  - Pneumonia [Not Recovered/Not Resolved]

NARRATIVE: CASE EVENT DATE: 20140712
